FAERS Safety Report 10622251 (Version 1)
Quarter: 2014Q4

REPORT INFORMATION
  Report Type: Spontaneous
  Country: US (occurrence: US)
  Receive Date: 20141203
  Receipt Date: 20141203
  Transmission Date: 20150529
  Serious: Yes (Other)
  Sender: FDA-Public Use
  Company Number: US-AMGEN-USASP2014092595

PATIENT
  Age: 58 Year
  Sex: Female

DRUGS (3)
  1. SINGULAIR [Concomitant]
     Active Substance: MONTELUKAST SODIUM
     Indication: ASTHMA
  2. FLONASE                            /00908302/ [Concomitant]
     Indication: HYPERSENSITIVITY
  3. PROLIA [Suspect]
     Active Substance: DENOSUMAB
     Indication: OSTEOPOROSIS POSTMENOPAUSAL
     Dosage: UNK
     Route: 065
     Dates: start: 2013

REACTIONS (8)
  - Fall [Unknown]
  - Balance disorder [Unknown]
  - Blood cholesterol increased [Unknown]
  - Sleep disorder due to general medical condition, insomnia type [Unknown]
  - Carbohydrate antigen 19-9 increased [Unknown]
  - Myalgia [Unknown]
  - Arthralgia [Unknown]
  - Rash generalised [Unknown]

NARRATIVE: CASE EVENT DATE: 2013
